FAERS Safety Report 9899525 (Version 1)
Quarter: 2014Q1

REPORT INFORMATION
  Report Type: Report from Study
  Country: ES (occurrence: ES)
  Receive Date: 20140214
  Receipt Date: 20140214
  Transmission Date: 20141002
  Serious: Yes (Other)
  Sender: FDA-Public Use
  Company Number: ES-CELGENEUS-144-50794-14015278

PATIENT
  Age: 86 Year
  Sex: Male
  Weight: 62 kg

DRUGS (1)
  1. VIDAZA [Suspect]
     Indication: PRODUCT USED FOR UNKNOWN INDICATION
     Dosage: 75 MILLIGRAM/SQ. METER
     Route: 065
     Dates: start: 20131014

REACTIONS (1)
  - Toxic skin eruption [Recovered/Resolved]
